FAERS Safety Report 26041400 (Version 1)
Quarter: 2025Q4

REPORT INFORMATION
  Report Type: Spontaneous
  Country: US (occurrence: None)
  Receive Date: 20251113
  Receipt Date: 20251113
  Transmission Date: 20260118
  Serious: Yes (Hospitalization)
  Sender: FDA-CTU
  Company Number: None

PATIENT
  Age: 53 Year
  Sex: Female

DRUGS (1)
  1. MOUNJARO [Suspect]
     Active Substance: TIRZEPATIDE
     Dosage: OTHER QUANTITY : NOT PROVIDED, GIVEN AS SAMPLE FROM MD;?OTHER FREQUENCY : NOT PROVIDED, GIVEN A SAMPLE FROM MD ;?

REACTIONS (1)
  - Vomiting [None]
